FAERS Safety Report 14325362 (Version 1)
Quarter: 2017Q4

REPORT INFORMATION
  Report Type: Spontaneous
  Country: FR (occurrence: FR)
  Receive Date: 20171226
  Receipt Date: 20171226
  Transmission Date: 20180321
  Serious: Yes (Other)
  Sender: FDA-Public Use
  Company Number: FR-SA-2017SA258553

PATIENT
  Age: 55 Year
  Sex: Male
  Weight: 93 kg

DRUGS (1)
  1. DUPILUMAB [Suspect]
     Active Substance: DUPILUMAB
     Indication: ECZEMA NUMMULAR
     Route: 058
     Dates: start: 20171113, end: 20171113

REACTIONS (5)
  - Eczema [Not Recovered/Not Resolved]
  - Irritability [Not Recovered/Not Resolved]
  - Burning sensation [Not Recovered/Not Resolved]
  - Sleep disorder [Not Recovered/Not Resolved]
  - Pruritus [Not Recovered/Not Resolved]

NARRATIVE: CASE EVENT DATE: 20171115
